FAERS Safety Report 14298099 (Version 1)
Quarter: 2017Q4

REPORT INFORMATION
  Report Type: Spontaneous
  Country: US (occurrence: US)
  Receive Date: 20171215
  Receipt Date: 20171215
  Transmission Date: 20180321
  Serious: Yes (Other)
  Sender: FDA-Public Use
  Company Number: None

PATIENT
  Age: 68 Year
  Sex: Female
  Weight: 72.9 kg

DRUGS (4)
  1. PROLIA [Suspect]
     Active Substance: DENOSUMAB
     Indication: OSTEOPENIA
     Dosage: ?          OTHER STRENGTH:1 SHOT;QUANTITY:1 SHOT;OTHER FREQUENCY:SEMI-ANNUAL;?
     Route: 030
     Dates: start: 20170809
  2. TAMOXIFEN [Concomitant]
     Active Substance: TAMOXIFEN
  3. CALCIUM WITH VITAMIN D [Concomitant]
     Active Substance: CALCIUM\VITAMIN D
  4. KROGER MULTI-VITAMINS WITH MINERALS [Concomitant]

REACTIONS (4)
  - Cystitis [None]
  - Muscle spasms [None]
  - Middle insomnia [None]
  - Herpes zoster [None]

NARRATIVE: CASE EVENT DATE: 20170905
